FAERS Safety Report 10213261 (Version 3)
Quarter: 2014Q2

REPORT INFORMATION
  Report Type: Spontaneous
  Country: IT (occurrence: None)
  Receive Date: 20140529
  Receipt Date: 20140617
  Transmission Date: 20141212
  Serious: Yes (Hospitalization)
  Sender: FDA-Public Use
  Company Number: FK201401862

PATIENT
  Age: 81 Year
  Sex: Female

DRUGS (1)
  1. CEFTRIAXON [Suspect]
     Indication: PNEUMONIA
     Dosage: 2 MG, 1 IN 1 D
     Dates: start: 20140214, end: 20140214

REACTIONS (4)
  - Hypotension [None]
  - Hypersensitivity [None]
  - Respiratory arrest [None]
  - Oxygen saturation decreased [None]
